FAERS Safety Report 6382445-6 (Version None)
Quarter: 2009Q3

REPORT INFORMATION
  Report Type: 
  Country: None (occurrence: None)
  Receive Date: 20090928
  Receipt Date: 20090928
  Transmission Date: 20100115
  Serious: Yes (Hospitalization)
  Sender: FDA-Public Use
  Company Number: None

PATIENT
  Sex: Male
  Weight: 62.3 kg

DRUGS (3)
  1. METHOTREXATE [Suspect]
     Dosage: 12 MG
  2. RAPAMUNE [Suspect]
     Dosage: 54 MG
  3. TACROLIMUS [Suspect]
     Dosage: 20.55 MG

REACTIONS (5)
  - ABDOMINAL PAIN [None]
  - LIVER FUNCTION TEST ABNORMAL [None]
  - PORTAL VEIN THROMBOSIS [None]
  - RETROGRADE PORTAL VEIN FLOW [None]
  - WEIGHT INCREASED [None]
